FAERS Safety Report 10220949 (Version 1)
Quarter: 2014Q2

REPORT INFORMATION
  Report Type: Spontaneous
  Country: US (occurrence: None)
  Receive Date: 20140605
  Receipt Date: 20140605
  Transmission Date: 20141212
  Serious: Yes (Death)
  Sender: FDA-Public Use
  Company Number: None

PATIENT
  Age: 60 Year
  Sex: Male
  Weight: 51 kg

DRUGS (2)
  1. BEVACIZUMAB (RHUMAB VEGF) (704865) [Suspect]
     Dosage: TOTAL DOSE 765 MG?
  2. LOVENOX [Concomitant]

REACTIONS (4)
  - Pyrexia [None]
  - Sneezing [None]
  - Cough [None]
  - Haemorrhage [None]
